FAERS Safety Report 17874057 (Version 3)
Quarter: 2025Q3

REPORT INFORMATION
  Report Type: Spontaneous
  Country: MY (occurrence: MY)
  Receive Date: 20200609
  Receipt Date: 20250926
  Transmission Date: 20251020
  Serious: Yes (Hospitalization, Other)
  Sender: BRISTOL-MYERS SQUIBB COMPANY
  Company Number: MY-BRISTOL-MYERS SQUIBB COMPANY-BMS-2020-044770

PATIENT
  Age: 53 Year
  Sex: Male

DRUGS (1)
  1. DASATINIB [Suspect]
     Active Substance: DASATINIB
     Indication: Chronic myeloid leukaemia
     Dosage: 100 MILLIGRAM, QD

REACTIONS (4)
  - Chylothorax [Recovering/Resolving]
  - Cellulitis [Recovering/Resolving]
  - Neuroendocrine carcinoma [Unknown]
  - Renal impairment [Recovering/Resolving]
